FAERS Safety Report 19869245 (Version 3)
Quarter: 2021Q4

REPORT INFORMATION
  Report Type: Spontaneous
  Country: US (occurrence: US)
  Receive Date: 20210922
  Receipt Date: 20211222
  Transmission Date: 20220303
  Serious: Yes (Hospitalization, Other)
  Sender: FDA-Public Use
  Company Number: US-ELI_LILLY_AND_COMPANY-US202109006782

PATIENT
  Sex: Male
  Weight: 92.063 kg

DRUGS (4)
  1. TRULICITY [Suspect]
     Active Substance: DULAGLUTIDE
     Indication: Diabetes mellitus
     Dosage: 0.75 MG, UNKNOWN
     Route: 058
     Dates: start: 201707
  2. METFORMIN [Concomitant]
     Active Substance: METFORMIN HYDROCHLORIDE
     Indication: Product used for unknown indication
  3. JANUVIA [Concomitant]
     Active Substance: SITAGLIPTIN PHOSPHATE
     Indication: Product used for unknown indication
     Dosage: 50 MG, BID (IN THE DAY AND AT NIGHT )
  4. GLYBURIDE [Concomitant]
     Active Substance: GLYBURIDE
     Indication: Product used for unknown indication

REACTIONS (8)
  - Arthropathy [Unknown]
  - Troponin increased [Recovered/Resolved]
  - Glycosylated haemoglobin increased [Recovered/Resolved]
  - Blood cholesterol abnormal [Unknown]
  - Blood pressure abnormal [Unknown]
  - Sleep disorder due to general medical condition, insomnia type [Unknown]
  - Illness [Recovered/Resolved]
  - Blood glucose decreased [Recovered/Resolved]
